FAERS Safety Report 25430621 (Version 2)
Quarter: 2025Q2

REPORT INFORMATION
  Report Type: Spontaneous
  Country: CH (occurrence: CH)
  Receive Date: 20250612
  Receipt Date: 20250620
  Transmission Date: 20250717
  Serious: Yes (Hospitalization, Other)
  Sender: PFIZER
  Company Number: CH-MLMSERVICE-20250530-PI526620-00285-1

PATIENT
  Age: 20 Year
  Sex: Male
  Weight: 66 kg

DRUGS (7)
  1. LORAZEPAM [Suspect]
     Active Substance: LORAZEPAM
  2. RISPERIDONE [Suspect]
     Active Substance: RISPERIDONE
     Indication: Antipsychotic therapy
  3. LEVOMEPROMAZINE [Suspect]
     Active Substance: LEVOMEPROMAZINE
  4. DIPHENHYDRAMINE [Suspect]
     Active Substance: DIPHENHYDRAMINE
  5. BIPERIDEN [Suspect]
     Active Substance: BIPERIDEN
  6. DOXYLAMINE [Suspect]
     Active Substance: DOXYLAMINE
  7. GUANFACINE [Suspect]
     Active Substance: GUANFACINE

REACTIONS (7)
  - Self-destructive behaviour [Unknown]
  - Aggression [Unknown]
  - Pyelocaliectasis [Unknown]
  - Hypertonic bladder [Unknown]
  - Urinary retention [Recovered/Resolved]
  - Pollakiuria [Unknown]
  - Constipation [Recovering/Resolving]
